FAERS Safety Report 19280390 (Version 1)
Quarter: 2021Q2

REPORT INFORMATION
  Report Type: Spontaneous
  Country: US (occurrence: US)
  Receive Date: 20210520
  Receipt Date: 20210520
  Transmission Date: 20210717
  Serious: No
  Sender: FDA-Public Use
  Company Number: US-ORGANON-O2105USA001216

PATIENT
  Sex: Female
  Weight: 82.2 kg

DRUGS (1)
  1. NEXPLANON [Suspect]
     Active Substance: ETONOGESTREL
     Dosage: 68 MILLIGRAM EVERY 3 YEARS; LEFT ARM
     Route: 059
     Dates: start: 20210503

REACTIONS (3)
  - No adverse event [Unknown]
  - Complication associated with device [Unknown]
  - Device expulsion [Unknown]

NARRATIVE: CASE EVENT DATE: 20210505
